FAERS Safety Report 14187741 (Version 1)
Quarter: 2017Q4

REPORT INFORMATION
  Report Type: Spontaneous
  Country: US (occurrence: None)
  Receive Date: 20171113
  Receipt Date: 20171113
  Transmission Date: 20180321
  Serious: No
  Sender: FDA-Public Use
  Company Number: None

PATIENT
  Age: 52 Year
  Sex: Female

DRUGS (1)
  1. DUPIXENT [Suspect]
     Active Substance: DUPILUMAB
     Indication: MALAISE
     Route: 058
     Dates: start: 20170622

REACTIONS (3)
  - Eye pruritus [None]
  - Angular cheilitis [None]
  - Eyelids pruritus [None]

NARRATIVE: CASE EVENT DATE: 20171004
